FAERS Safety Report 20201101 (Version 3)
Quarter: 2023Q2

REPORT INFORMATION
  Report Type: Spontaneous
  Country: US (occurrence: US)
  Receive Date: 20211217
  Receipt Date: 20230530
  Transmission Date: 20230722
  Serious: Yes (Other)
  Sender: FDA-Public Use
  Company Number: US-SUNOVION-2021SUN004669

PATIENT
  Sex: Female

DRUGS (3)
  1. APTIOM [Suspect]
     Active Substance: ESLICARBAZEPINE ACETATE
     Indication: Partial seizures
     Dosage: 1200 MG
     Route: 048
  2. APTIOM [Suspect]
     Active Substance: ESLICARBAZEPINE ACETATE
     Indication: Seizure
     Dosage: 800 MG
     Route: 048
  3. APTIOM [Suspect]
     Active Substance: ESLICARBAZEPINE ACETATE
     Dosage: 800 MG, BID
     Route: 048

REACTIONS (5)
  - Seizure [Not Recovered/Not Resolved]
  - Mental disorder [Not Recovered/Not Resolved]
  - Tremor [Not Recovered/Not Resolved]
  - Treatment noncompliance [Unknown]
  - Inappropriate schedule of product administration [Unknown]
